FAERS Safety Report 26138819 (Version 1)
Quarter: 2025Q4

REPORT INFORMATION
  Report Type: Spontaneous
  Country: US (occurrence: US)
  Receive Date: 20251210
  Receipt Date: 20251210
  Transmission Date: 20260117
  Serious: Yes (Other)
  Sender: QILU PHARMACEUTICAL
  Company Number: US-QILU PHARMACEUTICAL CO.LTD.-QLU-000264-2020

PATIENT
  Age: 66 Year
  Sex: Female

DRUGS (11)
  1. OXALIPLATIN [Suspect]
     Active Substance: OXALIPLATIN
     Indication: Adenocarcinoma of colon
     Dosage: 105 MILLIGRAM PER MILLILITRE
     Route: 065
  2. OXALIPLATIN [Suspect]
     Active Substance: OXALIPLATIN
     Dosage: UNK
     Route: 065
     Dates: start: 201906
  3. OXALIPLATIN [Suspect]
     Active Substance: OXALIPLATIN
     Dosage: 65 MILLIGRAM PER MILLILITRE
     Route: 065
  4. OXALIPLATIN [Suspect]
     Active Substance: OXALIPLATIN
     Dosage: UNK, FIRST CYCLE
     Route: 065
     Dates: start: 201802
  5. OXALIPLATIN [Suspect]
     Active Substance: OXALIPLATIN
     Dosage: UNK, 12 CYCLES COMPLETED
     Route: 065
     Dates: end: 201807
  6. LEUCOVORIN [Suspect]
     Active Substance: LEUCOVORIN\LEUCOVORIN CALCIUM
     Indication: Adenocarcinoma of colon
     Dosage: UNK, 12 CYCLES COMPLETED
     Route: 065
     Dates: end: 201807
  7. LEUCOVORIN [Suspect]
     Active Substance: LEUCOVORIN\LEUCOVORIN CALCIUM
     Dosage: UNK
     Route: 065
     Dates: start: 201906
  8. LEUCOVORIN [Suspect]
     Active Substance: LEUCOVORIN\LEUCOVORIN CALCIUM
     Dosage: UNK, FIRST CYCLE
     Route: 065
     Dates: start: 201802
  9. FLUOROURACIL [Suspect]
     Active Substance: FLUOROURACIL
     Indication: Adenocarcinoma of colon
     Dosage: UNK, FIRST CYCLE
     Route: 065
     Dates: start: 201802
  10. FLUOROURACIL [Suspect]
     Active Substance: FLUOROURACIL
     Dosage: UNK, 12 CYCLES COMPLETED
     Route: 065
     Dates: end: 201807
  11. FLUOROURACIL [Suspect]
     Active Substance: FLUOROURACIL
     Dosage: UNK
     Route: 065
     Dates: start: 201906

REACTIONS (8)
  - Neuropathy peripheral [Unknown]
  - Immune thrombocytopenia [Unknown]
  - Vaginal haemorrhage [Unknown]
  - Iron deficiency anaemia [Unknown]
  - Haematuria [Recovered/Resolved]
  - Nausea [Unknown]
  - Vomiting [Unknown]
  - Alopecia [Unknown]
